FAERS Safety Report 5145669-1 (Version None)
Quarter: 2006Q4

REPORT INFORMATION
  Report Type: 
  Country: None (occurrence: None)
  Receive Date: 20061024
  Receipt Date: 20061013
  Transmission Date: 20070319
  Serious: Yes (Hospitalization)
  Sender: FDA-Public Use
  Company Number: GBWYE012925SEP06

PATIENT
  Age: 20 Month
  Sex: Male

DRUGS (2)
  1. REFACTO [Suspect]
     Indication: HAEMORRHAGE
     Dosage: 1000 IU 1X PER 1 DAY INTRAVENOUS; SEE IMAGE
     Route: 042
     Dates: start: 20060606, end: 20060718
  2. TRANEXAMIC ACID [Concomitant]

REACTIONS (2)
  - FACTOR VIII INHIBITION [None]
  - THERAPY NON-RESPONDER [None]
